FAERS Safety Report 10719489 (Version 2)
Quarter: 2015Q1

REPORT INFORMATION
  Report Type: Spontaneous
  Country: US (occurrence: US)
  Receive Date: 20150119
  Receipt Date: 20150119
  Transmission Date: 20150721
  Serious: No
  Sender: FDA-Public Use
  Company Number: US-UNITED THERAPEUTICS-UNT-2014-004329

PATIENT
  Age: 64 Year
  Sex: Female
  Weight: 73.92 kg

DRUGS (3)
  1. REMODULIN [Suspect]
     Active Substance: TREPROSTINIL
     Indication: COR PULMONALE CHRONIC
     Dosage: 0.0275 ?G/KG/MIN, CONTINUING
     Route: 058
     Dates: start: 20071002
  2. REVATIO [Concomitant]
     Active Substance: SILDENAFIL CITRATE
     Indication: PRODUCT USED FOR UNKNOWN INDICATION
  3. COUMADIN [Concomitant]
     Active Substance: WARFARIN SODIUM
     Indication: PRODUCT USED FOR UNKNOWN INDICATION

REACTIONS (4)
  - Device deployment issue [Unknown]
  - Puncture site pain [Unknown]
  - Dysstasia [Unknown]
  - Headache [Unknown]

NARRATIVE: CASE EVENT DATE: 20140715
